FAERS Safety Report 14577914 (Version 2)
Quarter: 2018Q1

REPORT INFORMATION
  Report Type: Spontaneous
  Country: ZA (occurrence: ZA)
  Receive Date: 20180227
  Receipt Date: 20180305
  Transmission Date: 20180509
  Serious: Yes (Hospitalization, Other)
  Sender: FDA-Public Use
  Company Number: ZA-JNJFOC-20180226694

PATIENT
  Age: 48 Year
  Sex: Female
  Weight: 47 kg

DRUGS (16)
  1. SIRTURO [Suspect]
     Active Substance: BEDAQUILINE FUMARATE
     Indication: TUBERCULOSIS
     Route: 048
     Dates: end: 20180115
  2. LINEZOLID. [Suspect]
     Active Substance: LINEZOLID
     Indication: TUBERCULOSIS
     Route: 048
     Dates: start: 20171101, end: 20171114
  3. LEVOFLOXACIN. [Suspect]
     Active Substance: LEVOFLOXACIN
     Indication: TUBERCULOSIS
     Route: 048
     Dates: start: 20171101, end: 20180115
  4. EMTRICITABINE [Concomitant]
     Active Substance: EMTRICITABINE
     Indication: ANTIVIRAL TREATMENT
     Route: 048
     Dates: start: 20171101, end: 20180122
  5. PYRIDOXINE [Concomitant]
     Active Substance: PYRIDOXINE
     Indication: PROPHYLAXIS
     Route: 048
     Dates: start: 20171101
  6. TERIZIDONE [Suspect]
     Active Substance: TERIZIDONE
     Indication: TUBERCULOSIS
     Route: 048
     Dates: end: 20180115
  7. TERIZIDONE [Suspect]
     Active Substance: TERIZIDONE
     Indication: TUBERCULOSIS
     Route: 048
     Dates: start: 20171101, end: 20171103
  8. TENOFOVIR DISOPROXIL FUMARATE. [Concomitant]
     Active Substance: TENOFOVIR DISOPROXIL FUMARATE
     Indication: ANTIVIRAL TREATMENT
     Route: 048
     Dates: start: 2013
  9. PARA-AMINOSALICYLIC ACID [Suspect]
     Active Substance: AMINOSALICYLIC ACID
     Indication: TUBERCULOSIS
     Route: 048
     Dates: start: 20171101, end: 20180115
  10. NEVIRAPINE. [Concomitant]
     Active Substance: NEVIRAPINE
     Indication: ANTIVIRAL TREATMENT
     Route: 048
     Dates: start: 20171101
  11. SIRTURO [Suspect]
     Active Substance: BEDAQUILINE FUMARATE
     Indication: TUBERCULOSIS
     Dosage: 400 MG FOR 14 DAYS
     Route: 048
     Dates: start: 20171101
  12. PYRAZINAMIDE. [Suspect]
     Active Substance: PYRAZINAMIDE
     Indication: TUBERCULOSIS
     Route: 048
     Dates: start: 20171218, end: 20180115
  13. ETHAMBUTOL [Suspect]
     Active Substance: ETHAMBUTOL HYDROCHLORIDE
     Indication: TUBERCULOSIS
     Route: 048
     Dates: start: 20171101, end: 20180115
  14. PYRAZINAMIDE. [Suspect]
     Active Substance: PYRAZINAMIDE
     Indication: TUBERCULOSIS
     Route: 048
     Dates: start: 20180123
  15. TENOFOVIR DISOPROXIL FUMARATE. [Concomitant]
     Active Substance: TENOFOVIR DISOPROXIL FUMARATE
     Indication: ANTIVIRAL TREATMENT
     Route: 048
     Dates: start: 20171101, end: 20180122
  16. CLOFAZIMINE [Suspect]
     Active Substance: CLOFAZIMINE
     Indication: TUBERCULOSIS
     Route: 048
     Dates: start: 20171101, end: 20180115

REACTIONS (4)
  - Weight decreased [Recovering/Resolving]
  - Electrocardiogram QT prolonged [Unknown]
  - Anaemia [Recovering/Resolving]
  - Confusional state [Unknown]

NARRATIVE: CASE EVENT DATE: 20171115
